FAERS Safety Report 5190803-0 (Version None)
Quarter: 2006Q4

REPORT INFORMATION
  Report Type: 
  Country: None (occurrence: None)
  Receive Date: 20061215
  Receipt Date: 20061204
  Transmission Date: 20070319
  Serious: Yes (Other)
  Sender: FDA-Public Use
  Company Number: S06-FRA-03821-01

PATIENT
  Age: 54 Year
  Sex: Male
  Weight: 80 kg

DRUGS (10)
  1. CITALOPRAM HYDROBROMIDE [Suspect]
     Indication: AGORAPHOBIA
     Dosage: 20 MG BID; PO
     Route: 048
     Dates: start: 20041101, end: 20060427
  2. CITALOPRAM HYDROBROMIDE [Suspect]
     Indication: PANIC ATTACK
     Dosage: 20 MG BID; PO
     Route: 048
     Dates: start: 20041101, end: 20060427
  3. CITALOPRAM HYDROBROMIDE [Suspect]
     Indication: THERAPY CESSATION
     Dosage: 20 MG BID; PO
     Route: 048
     Dates: start: 20041101, end: 20060427
  4. CITALOPRAM HYDROBROMIDE [Suspect]
     Indication: AGORAPHOBIA
     Dosage: 20 MG QD; PO
     Route: 048
     Dates: start: 20061005
  5. CITALOPRAM HYDROBROMIDE [Suspect]
     Indication: PANIC ATTACK
     Dosage: 20 MG QD; PO
     Route: 048
     Dates: start: 20061005
  6. CITALOPRAM HYDROBROMIDE [Suspect]
     Indication: THERAPY CESSATION
     Dosage: 20 MG QD; PO
     Route: 048
     Dates: start: 20061005
  7. XANAX [Concomitant]
  8. HYPERIUM                         (RILMENIDINE) [Concomitant]
  9. PRAVASTATIN [Concomitant]
  10. RAMIPRIL [Concomitant]

REACTIONS (1)
  - GLIOBLASTOMA [None]
